FAERS Safety Report 20658990 (Version 1)
Quarter: 2022Q1

REPORT INFORMATION
  Report Type: Spontaneous
  Country: US (occurrence: US)
  Receive Date: 20220331
  Receipt Date: 20220331
  Transmission Date: 20220423
  Serious: Yes (Other)
  Sender: FDA-Public Use
  Company Number: US-GLAXOSMITHKLINE-USCH2022GSK012318

PATIENT
  Age: 20 Year
  Sex: Male

DRUGS (5)
  1. DELSYM [Suspect]
     Active Substance: DEXTROMETHORPHAN
     Indication: Product used for unknown indication
     Dosage: 300 MG, EVERY 2 TO 4 WEEKS
     Route: 048
     Dates: start: 201506
  2. DELSYM [Suspect]
     Active Substance: DEXTROMETHORPHAN
     Dosage: 400 MG PER OCCASION
     Route: 048
  3. DELSYM [Suspect]
     Active Substance: DEXTROMETHORPHAN
     Dosage: 400 MG BIMONTHLY
     Route: 048
  4. DELSYM [Suspect]
     Active Substance: DEXTROMETHORPHAN
     Dosage: 400 MG MONTHLY
     Route: 048
  5. ROBITUSSIN (GUAIFENESIN) [Suspect]
     Active Substance: GUAIFENESIN
     Indication: Product used for unknown indication
     Dosage: 300 MG ON ONE OCCASION
     Dates: start: 201603

REACTIONS (25)
  - Delusional perception [Recovering/Resolving]
  - Depression [Unknown]
  - Feeling of despair [Unknown]
  - Suicidal ideation [Unknown]
  - Visual impairment [Recovering/Resolving]
  - Tinnitus [Recovering/Resolving]
  - Depersonalisation/derealisation disorder [Recovered/Resolved]
  - Derealisation [Recovered/Resolved]
  - Substance use [Unknown]
  - Hallucination, visual [Unknown]
  - Toxicity to various agents [Unknown]
  - Panic attack [Unknown]
  - Paranoia [Unknown]
  - Scintillating scotoma [Recovering/Resolving]
  - Movement disorder [Recovering/Resolving]
  - Schizophrenia [Unknown]
  - Bipolar I disorder [Unknown]
  - Major depression [Unknown]
  - Adjustment disorder [Unknown]
  - Anxiety [Recovering/Resolving]
  - Emotional distress [Unknown]
  - Condition aggravated [Unknown]
  - Drug abuse [Unknown]
  - Vitreous floaters [Recovering/Resolving]
  - Visual perseveration [Not Recovered/Not Resolved]
